FAERS Safety Report 10741105 (Version 1)
Quarter: 2015Q1

REPORT INFORMATION
  Report Type: Spontaneous
  Country: US (occurrence: US)
  Receive Date: 20150127
  Receipt Date: 20150127
  Transmission Date: 20150721
  Serious: No
  Sender: FDA-Public Use
  Company Number: US-MYLANLABS-2014S1008920

PATIENT
  Age: 37 Year
  Sex: Female
  Weight: 50.35 kg

DRUGS (9)
  1. GARLIC. [Concomitant]
     Active Substance: GARLIC
     Dosage: UNK UNK,AM
  2. VITAMIN C [Concomitant]
     Active Substance: ASCORBIC ACID
     Dosage: UNK UNK,AM
  3. FISH OIL [Concomitant]
     Active Substance: FISH OIL
     Dosage: UNK UNK,AM
  4. VYVANSE [Concomitant]
     Active Substance: LISDEXAMFETAMINE DIMESYLATE
     Indication: ATTENTION DEFICIT/HYPERACTIVITY DISORDER
     Dosage: UNK UNK,BID
  5. ZONISAMIDE  CAPSULES, USP [Suspect]
     Active Substance: ZONISAMIDE
     Indication: OFF LABEL USE
  6. ZONISAMIDE CAPSULES, USP [Suspect]
     Active Substance: ZONISAMIDE
     Indication: ATTENTION DEFICIT/HYPERACTIVITY DISORDER
     Dosage: 100 MG,ONCE
     Route: 048
     Dates: start: 20140413, end: 20140413
  7. CALCIUM [Concomitant]
     Active Substance: CALCIUM
     Dosage: UNK UNK,AM
  8. LINZESS [Concomitant]
     Active Substance: LINACLOTIDE
     Indication: IRRITABLE BOWEL SYNDROME
     Dosage: 290 MG,QD
  9. MULTIVITAMIN [Concomitant]
     Active Substance: VITAMINS
     Dosage: UNK UNK,AM

REACTIONS (2)
  - Vision blurred [Not Recovered/Not Resolved]
  - Nystagmus [Recovering/Resolving]

NARRATIVE: CASE EVENT DATE: 20140413
